FAERS Safety Report 8664898 (Version 7)
Quarter: 2013Q1

REPORT INFORMATION
  Report Type: Report from Study
  Country: US (occurrence: US)
  Receive Date: 20120713
  Receipt Date: 20130301
  Transmission Date: 20140127
  Serious: Yes (Hospitalization, Other)
  Sender: FDA-Public Use
  Company Number: US-ABBOTT-12P-163-0954428-00

PATIENT
  Age: 42 Year
  Sex: Female
  Weight: 55.39 kg

DRUGS (8)
  1. HUMIRA 40 MG/0.8 ML PEN [Suspect]
     Indication: CROHN^S DISEASE
     Route: 058
     Dates: start: 20120608, end: 20120706
  2. HUMIRA 40 MG/0.8 ML PEN [Suspect]
     Route: 058
     Dates: start: 20120622, end: 20120622
  3. HUMIRA 40 MG/0.8 ML PEN [Suspect]
     Route: 058
     Dates: start: 201206
  4. PREDNISONE [Suspect]
     Indication: CROHN^S DISEASE
     Dates: end: 201206
  5. PROBIOTIC ACIDOPHILUS [Suspect]
     Indication: PRODUCT USED FOR UNKNOWN INDICATION
  6. HYDROCODONE [Concomitant]
     Indication: PAIN
  7. TYLENOL [Concomitant]
     Indication: PYREXIA
  8. CENTRUM MULTIVITAMIN TAB CHEW [Concomitant]

REACTIONS (21)
  - Intestinal mass [Not Recovered/Not Resolved]
  - Pyrexia [Recovered/Resolved]
  - Pyrexia [Recovered/Resolved]
  - Malaise [Recovered/Resolved]
  - Appendicitis [Recovered/Resolved]
  - Postoperative wound infection [Recovering/Resolving]
  - Appendicitis [Recovered/Resolved]
  - Abdominal infection [Recovered/Resolved]
  - Abdominal infection [Recovered/Resolved]
  - Night sweats [Not Recovered/Not Resolved]
  - Chills [Not Recovered/Not Resolved]
  - Pyrexia [Not Recovered/Not Resolved]
  - Hypoaesthesia [Not Recovered/Not Resolved]
  - Hypoaesthesia [Unknown]
  - Alopecia [Unknown]
  - Injection site pruritus [Not Recovered/Not Resolved]
  - Injection site swelling [Not Recovered/Not Resolved]
  - Paraesthesia [Not Recovered/Not Resolved]
  - Malaise [Not Recovered/Not Resolved]
  - Malaise [Not Recovered/Not Resolved]
  - Abdominal pain lower [Unknown]
